FAERS Safety Report 14613410 (Version 3)
Quarter: 2019Q3

REPORT INFORMATION
  Report Type: Spontaneous
  Country: US (occurrence: US)
  Receive Date: 20180308
  Receipt Date: 20190704
  Transmission Date: 20191004
  Serious: Yes (Other)
  Sender: FDA-Public Use
  Company Number: US-ASTRAZENECA-2018SE27833

PATIENT
  Age: 22813 Day
  Sex: Female
  Weight: 104.3 kg

DRUGS (37)
  1. ISOSORBIDE MONONITRATE. [Concomitant]
     Active Substance: ISOSORBIDE MONONITRATE
  2. HYDRALAZINE [Concomitant]
     Active Substance: HYDRALAZINE HYDROCHLORIDE
  3. FUROSEMIDE. [Concomitant]
     Active Substance: FUROSEMIDE
  4. PREDNISONE. [Concomitant]
     Active Substance: PREDNISONE
  5. METOPROLOL TARTRATE. [Concomitant]
     Active Substance: METOPROLOL TARTRATE
     Route: 065
  6. VALSARTAN. [Concomitant]
     Active Substance: VALSARTAN
     Route: 065
  7. NEXIUM [Suspect]
     Active Substance: ESOMEPRAZOLE MAGNESIUM
     Indication: GASTROOESOPHAGEAL REFLUX DISEASE
     Route: 048
     Dates: start: 200406, end: 201202
  8. NEXIUM [Suspect]
     Active Substance: ESOMEPRAZOLE MAGNESIUM
     Indication: GASTROOESOPHAGEAL REFLUX DISEASE
     Route: 048
     Dates: start: 20050628, end: 20090927
  9. NEXIUM [Suspect]
     Active Substance: ESOMEPRAZOLE MAGNESIUM
     Indication: GASTROOESOPHAGEAL REFLUX DISEASE
     Route: 048
     Dates: start: 20060628
  10. METHIMAZOLE. [Concomitant]
     Active Substance: METHIMAZOLE
  11. GABAPENTIN. [Concomitant]
     Active Substance: GABAPENTIN
  12. COUMADIN [Concomitant]
     Active Substance: WARFARIN SODIUM
     Route: 065
  13. PRILOSEC OTC [Suspect]
     Active Substance: OMEPRAZOLE MAGNESIUM
     Indication: GASTROOESOPHAGEAL REFLUX DISEASE
     Route: 048
     Dates: start: 20091007, end: 20101224
  14. METOPROLOL. [Concomitant]
     Active Substance: METOPROLOL
  15. PRAVASTATIN. [Concomitant]
     Active Substance: PRAVASTATIN
  16. TORSEMIDE. [Concomitant]
     Active Substance: TORSEMIDE
  17. GLYBURIDE. [Concomitant]
     Active Substance: GLYBURIDE
  18. NEXIUM [Suspect]
     Active Substance: ESOMEPRAZOLE MAGNESIUM
     Indication: GASTROOESOPHAGEAL REFLUX DISEASE
     Route: 048
     Dates: start: 20050930
  19. ADVAIR HFA [Concomitant]
     Active Substance: FLUTICASONE PROPIONATE\SALMETEROL XINAFOATE
  20. PACERONE [Concomitant]
     Active Substance: AMIODARONE HYDROCHLORIDE
  21. HYDRALAZINE [Concomitant]
     Active Substance: HYDRALAZINE HYDROCHLORIDE
     Route: 065
  22. PRILOSEC OTC [Suspect]
     Active Substance: OMEPRAZOLE MAGNESIUM
     Indication: GASTROOESOPHAGEAL REFLUX DISEASE
     Dosage: GENERIC
     Route: 048
     Dates: start: 20150115
  23. PRILOSEC OTC [Suspect]
     Active Substance: OMEPRAZOLE MAGNESIUM
     Indication: GASTROOESOPHAGEAL REFLUX DISEASE
     Route: 048
     Dates: start: 20110830
  24. IPRATROPIUM [Concomitant]
     Active Substance: IPRATROPIUM
  25. METOPROLOL. [Concomitant]
     Active Substance: METOPROLOL
  26. NOVOLOG [Concomitant]
     Active Substance: INSULIN ASPART
     Route: 065
  27. PRILOSEC OTC [Suspect]
     Active Substance: OMEPRAZOLE MAGNESIUM
     Indication: GASTROOESOPHAGEAL REFLUX DISEASE
     Route: 048
     Dates: start: 200406, end: 201202
  28. LISINOPRIL. [Concomitant]
     Active Substance: LISINOPRIL
  29. ASPIRIN. [Concomitant]
     Active Substance: ASPIRIN
  30. BUMETANIDE. [Concomitant]
     Active Substance: BUMETANIDE
  31. KLOR-CON [Concomitant]
     Active Substance: POTASSIUM CHLORIDE
  32. LANTUS [Concomitant]
     Active Substance: INSULIN GLARGINE
     Route: 065
  33. LIPITOR [Concomitant]
     Active Substance: ATORVASTATIN CALCIUM
     Route: 065
  34. OXYCODONE [Concomitant]
     Active Substance: OXYCODONE
  35. WARFARIN [Concomitant]
     Active Substance: WARFARIN
  36. DIGOXIN. [Concomitant]
     Active Substance: DIGOXIN
     Route: 065
  37. PRILOSEC OTC [Suspect]
     Active Substance: OMEPRAZOLE MAGNESIUM
     Indication: GASTROOESOPHAGEAL REFLUX DISEASE
     Route: 048
     Dates: start: 20110524, end: 20140309

REACTIONS (4)
  - Chronic kidney disease [Not Recovered/Not Resolved]
  - Nephrogenic anaemia [Unknown]
  - End stage renal disease [Unknown]
  - Acute kidney injury [Unknown]

NARRATIVE: CASE EVENT DATE: 20130825
